FAERS Safety Report 5363762-5 (Version None)
Quarter: 2007Q2

REPORT INFORMATION
  Report Type: 
  Country: None (occurrence: None)
  Receive Date: 20070620
  Receipt Date: 20070611
  Transmission Date: 20071010
  Serious: Yes (Other)
  Sender: FDA-Public Use
  Company Number: US-JNJFOC-20070602907

PATIENT
  Sex: Female
  Weight: 99.79 kg

DRUGS (5)
  1. DURAGESIC-100 [Suspect]
     Indication: PAIN
     Dosage: 100 UG/HR PLUS 25 UG/HR PATCHES
     Route: 062
  2. TOPAMAX [Concomitant]
     Indication: MIGRAINE
     Route: 048
  3. VALIUM [Concomitant]
     Indication: PANIC DISORDER
     Dosage: TOTAL DOSE: 15 MG PER DAY
     Route: 048
  4. CELEBREX [Concomitant]
     Indication: PAIN
     Route: 048
  5. UNSPECIFIED ANTILIPEMIC [Concomitant]
     Indication: BLOOD CHOLESTEROL INCREASED
     Route: 048

REACTIONS (13)
  - ABASIA [None]
  - ARTHRITIS [None]
  - FEELING ABNORMAL [None]
  - FEELING COLD [None]
  - HOT FLUSH [None]
  - INAPPROPRIATE SCHEDULE OF DRUG ADMINISTRATION [None]
  - INTENTIONAL DRUG MISUSE [None]
  - MUSCULAR WEAKNESS [None]
  - PAIN [None]
  - PAIN IN EXTREMITY [None]
  - PHARMACEUTICAL PRODUCT COMPLAINT [None]
  - RESTLESS LEGS SYNDROME [None]
  - WRONG TECHNIQUE IN DRUG USAGE PROCESS [None]
